FAERS Safety Report 4687248-6 (Version None)
Quarter: 2005Q2

REPORT INFORMATION
  Report Type: 
  Country: None (occurrence: None)
  Receive Date: 20050606
  Receipt Date: 20050531
  Transmission Date: 20051028
  Serious: Yes (Life-Threatening)
  Sender: FDA-Public Use
  Company Number: 05H-083-0299722-00

PATIENT
  Sex: Male

DRUGS (1)
  1. DOBUTAMINE HCL [Suspect]
     Indication: STRESS ECHOCARDIOGRAM
     Dosage: 5, 10, 20, 30 AND 40 MCG/KG, EVERY 3 MIN, INFUSION

REACTIONS (1)
  - VENTRICULAR ARRHYTHMIA [None]
